FAERS Safety Report 8939356 (Version 1)
Quarter: 2012Q4

REPORT INFORMATION
  Report Type: 
  Country: DE (occurrence: DE)
  Receive Date: 20121203
  Receipt Date: 20121203
  Transmission Date: 20130627
  Serious: Yes (Other)
  Sender: FDA-Public Use
  Company Number: DE-JNJFOC-20121109280

PATIENT
  Age: 19 Year
  Sex: Male
  Weight: 72 kg

DRUGS (3)
  1. RISPERDAL [Suspect]
     Indication: PRODUCT USED FOR UNKNOWN INDICATION
     Dosage: 10 tablets
     Route: 048
     Dates: start: 20121119, end: 20121119
  2. CITALOPRAM [Suspect]
     Indication: PRODUCT USED FOR UNKNOWN INDICATION
     Dosage: 10-20 tablets
     Route: 048
     Dates: start: 20121119, end: 20121119
  3. PROMETHAZINE [Suspect]
     Indication: PRODUCT USED FOR UNKNOWN INDICATION
     Dosage: 3 tablets
     Route: 048
     Dates: start: 20121119, end: 20121119

REACTIONS (2)
  - Suicide attempt [Unknown]
  - Intentional overdose [Unknown]
